FAERS Safety Report 22290222 (Version 2)
Quarter: 2023Q2

REPORT INFORMATION
  Report Type: Other
  Country: FR (occurrence: FR)
  Receive Date: 20230505
  Receipt Date: 20230509
  Transmission Date: 20230722
  Serious: Yes (Other)
  Sender: FDA-Public Use
  Company Number: None

PATIENT
  Age: 65 Year
  Sex: Female

DRUGS (5)
  1. PROGRAF [Suspect]
     Active Substance: TACROLIMUS
     Indication: Prophylaxis against transplant rejection
     Dosage: 4 MG, OTHER (MORNINGS AND EVENINGS)
     Route: 048
     Dates: start: 202303
  2. SPIRONOLACTONE [Suspect]
     Active Substance: SPIRONOLACTONE
     Indication: Hepatic failure
     Dosage: 50 MG, OTHER (MORNINGS)
     Route: 048
     Dates: start: 202211
  3. FUROSEMIDE [Suspect]
     Active Substance: FUROSEMIDE
     Indication: Hepatic failure
     Dosage: 1 DOSAGE FORM, ONCE DAILY (1 20-MG TAB MORNINGS)
     Route: 048
     Dates: start: 202211
  4. CARVEDILOL [Suspect]
     Active Substance: CARVEDILOL
     Indication: Hepatic failure
     Dosage: 6.25 MG, OTHER (MORNINGS IN EVENING)
     Route: 048
     Dates: start: 202212
  5. CELLCEPT [Suspect]
     Active Substance: MYCOPHENOLATE MOFETIL
     Indication: Prophylaxis against transplant rejection
     Dosage: 750 MG, OTHER (MORNINGS AND EVENINGS)
     Route: 048
     Dates: start: 202303

REACTIONS (1)
  - Pericarditis [Recovering/Resolving]

NARRATIVE: CASE EVENT DATE: 20230416
